FAERS Safety Report 22671895 (Version 2)
Quarter: 2023Q4

REPORT INFORMATION
  Report Type: Report from Study
  Country: CN (occurrence: CN)
  Receive Date: 20230705
  Receipt Date: 20231018
  Transmission Date: 20240110
  Serious: Yes (Death)
  Sender: FDA-Public Use
  Company Number: CN-ELI_LILLY_AND_COMPANY-CN202307000792

PATIENT

DRUGS (3)
  1. GEMCITABINE HYDROCHLORIDE [Suspect]
     Active Substance: GEMCITABINE HYDROCHLORIDE
     Indication: Nasopharyngeal cancer stage III
     Dosage: 1000 MG/M2, CYCLICAL
     Route: 042
  2. CISPLATIN [Concomitant]
     Active Substance: CISPLATIN
     Indication: Nasopharyngeal cancer stage III
     Dosage: 100 MG/M2, CYCLICAL
     Route: 042
  3. CISPLATIN [Concomitant]
     Active Substance: CISPLATIN
     Dosage: 80 MG/M 2 INTRAVENOUSLY FOR 4 H
     Route: 042

REACTIONS (2)
  - Neutropenic sepsis [Fatal]
  - Septic shock [Fatal]
